FAERS Safety Report 11301058 (Version 1)
Quarter: 2015Q3

REPORT INFORMATION
  Report Type: Spontaneous
  Country: US (occurrence: None)
  Receive Date: 20150723
  Receipt Date: 20150723
  Transmission Date: 20151125
  Serious: Yes (Hospitalization)
  Sender: FDA-Public Use
  Company Number: None

PATIENT
  Age: 2 Year
  Sex: Female
  Weight: 11.8 kg

DRUGS (4)
  1. METHOTREXATE PF 50 MG/2 ML TEVA [Suspect]
     Active Substance: METHOTREXATE
     Indication: ACUTE LYMPHOCYTIC LEUKAEMIA
     Route: 038
     Dates: start: 20150619, end: 20150619
  2. VINCRISTINE [Concomitant]
     Active Substance: VINCRISTINE
  3. PEG/L-ASPARAGINASE [Concomitant]
     Active Substance: PEGASPARGASE
  4. ONDANSETRON [Concomitant]
     Active Substance: ONDANSETRON

REACTIONS (4)
  - Mental status changes [None]
  - Leukoencephalopathy [None]
  - Product quality issue [None]
  - Dyskinesia [None]

NARRATIVE: CASE EVENT DATE: 20150623
